FAERS Safety Report 22652530 (Version 1)
Quarter: 2023Q2

REPORT INFORMATION
  Report Type: Spontaneous
  Country: US (occurrence: US)
  Receive Date: 20230629
  Receipt Date: 20230629
  Transmission Date: 20230721
  Serious: No
  Sender: FDA-Public Use
  Company Number: US-TOLMAR, INC.-23US041553

PATIENT
  Age: 9 Year
  Sex: Female

DRUGS (3)
  1. FENSOLVI [Suspect]
     Active Substance: LEUPROLIDE ACETATE
     Indication: Precocious puberty
     Dosage: 45 MILLIGRAM
     Dates: start: 20230620
  2. FENSOLVI [Suspect]
     Active Substance: LEUPROLIDE ACETATE
     Dosage: 45 MILLIGRAM
  3. FENSOLVI [Suspect]
     Active Substance: LEUPROLIDE ACETATE
     Dosage: 45 MILLIGRAM

REACTIONS (3)
  - Intercepted product preparation error [Unknown]
  - Device leakage [Unknown]
  - Device issue [Unknown]

NARRATIVE: CASE EVENT DATE: 20230620
